FAERS Safety Report 8775845 (Version 1)
Quarter: 2012Q4

REPORT INFORMATION
  Report Type: 
  Country: JP (occurrence: JP)
  Receive Date: 20120910
  Receipt Date: 20120910
  Transmission Date: 20130627
  Serious: Yes (Life-Threatening, Hospitalization)
  Sender: FDA-Public Use
  Company Number: JP-009507513-1202USA01050

PATIENT

DRUGS (11)
  1. JANUVIA TABLETS 50MG [Suspect]
     Indication: DIABETES MELLITUS MANAGEMENT
     Dosage: 50 mg, qd
     Route: 048
     Dates: start: 20111214, end: 20120122
  2. JANUVIA TABLETS 50MG [Suspect]
     Indication: BLOOD GLUCOSE
  3. EPALRESTAT [Concomitant]
     Dosage: 150 mg, tid
     Route: 048
  4. ARTIST [Concomitant]
     Dosage: 0.5 DF, qd
     Route: 048
  5. PLETAAL [Concomitant]
     Dosage: 200 mg, bid
     Route: 048
  6. VASOLAN [Concomitant]
     Dosage: 80 mg, bid
     Route: 048
  7. WARFARIN [Concomitant]
     Dosage: Dosage is uncertain during a day
     Route: 048
  8. URSO [Concomitant]
     Dosage: Dosage was uncertain during a day
     Route: 048
  9. TAKEPRON [Concomitant]
     Dosage: Dosage is uncertaing during a day
     Route: 048
  10. ASPENON [Concomitant]
     Dosage: dosage was uncertaing during a day
     Route: 048
  11. GASMOTIN [Concomitant]
     Dosage: Dosage was uncertain during a day
     Route: 048

REACTIONS (1)
  - Interstitial lung disease [Recovered/Resolved]
